FAERS Safety Report 12911036 (Version 8)
Quarter: 2017Q3

REPORT INFORMATION
  Report Type: Spontaneous
  Country: US (occurrence: US)
  Receive Date: 20161104
  Receipt Date: 20170901
  Transmission Date: 20171127
  Serious: No
  Sender: FDA-Public Use
  Company Number: US-PFIZER INC-2016509847

PATIENT
  Age: 80 Year
  Sex: Female

DRUGS (6)
  1. LETROZOLE. [Suspect]
     Active Substance: LETROZOLE
     Indication: ANTIOESTROGEN THERAPY
     Dosage: 25 MG, DAILY
     Route: 048
     Dates: start: 20161028
  2. IBRANCE [Suspect]
     Active Substance: PALBOCICLIB
     Dosage: 125 MG, CYCLIC [DAILY DAY 1-21 OF 28 DAY CYCLE]
     Route: 048
     Dates: start: 20161028
  3. IBRANCE [Suspect]
     Active Substance: PALBOCICLIB
     Dosage: 125 MG, UNK
     Dates: start: 20161026
  4. IBRANCE [Suspect]
     Active Substance: PALBOCICLIB
     Indication: BREAST CANCER METASTATIC
     Dosage: 100 MG, UNK
     Dates: start: 20161028
  5. LETROZOLE. [Suspect]
     Active Substance: LETROZOLE
     Indication: BREAST CANCER
     Dosage: UNK
     Dates: start: 20161026
  6. LETROZOLE. [Suspect]
     Active Substance: LETROZOLE
     Dosage: 2.5 MG, DAILY
     Route: 048
     Dates: start: 20161028

REACTIONS (15)
  - Insomnia [Unknown]
  - Dry mouth [Unknown]
  - Myalgia [Unknown]
  - Abdominal pain [Unknown]
  - Amnesia [Unknown]
  - Headache [Unknown]
  - Night sweats [Unknown]
  - Cough [Unknown]
  - Intentional product misuse [Unknown]
  - Constipation [Recovered/Resolved]
  - Stomatitis [Unknown]
  - Fatigue [Unknown]
  - Dysphagia [Unknown]
  - Lymphadenopathy [Unknown]
  - Pain in extremity [Unknown]

NARRATIVE: CASE EVENT DATE: 2016
